FAERS Safety Report 7103415-6 (Version None)
Quarter: 2010Q4

REPORT INFORMATION
  Report Type: 
  Country: None (occurrence: None)
  Receive Date: 20101115
  Receipt Date: 20080605
  Transmission Date: 20110411
  Serious: No
  Sender: FDA-Public Use
  Company Number: US-KINGPHARMUSA00001-K200800642

PATIENT
  Sex: Female

DRUGS (1)
  1. AVINZA [Suspect]

REACTIONS (1)
  - NERVOUS SYSTEM DISORDER [None]
